FAERS Safety Report 19217355 (Version 1)
Quarter: 2021Q2

REPORT INFORMATION
  Report Type: Spontaneous
  Country: US (occurrence: US)
  Receive Date: 20210505
  Receipt Date: 20210505
  Transmission Date: 20210717
  Serious: Yes (Other)
  Sender: FDA-Public Use
  Company Number: None

PATIENT
  Age: 11 Year
  Sex: Male
  Weight: 56.25 kg

DRUGS (1)
  1. BRIGHT SCIENCE HAND SANITIZER, FRESH LEMON SCENT [Suspect]
     Active Substance: ALCOHOL
     Indication: COVID-19 PROPHYLAXIS
     Dosage: ?          QUANTITY:1 TEASPOON(S);?
     Route: 061
     Dates: start: 20210429, end: 20210429

REACTIONS (8)
  - Application site haemorrhage [None]
  - Application site irritation [None]
  - Skin wrinkling [None]
  - Skin irritation [None]
  - Skin fissures [None]
  - Application site erythema [None]
  - Application site pain [None]
  - Application site swelling [None]

NARRATIVE: CASE EVENT DATE: 20210429
